FAERS Safety Report 5223888-3 (Version None)
Quarter: 2007Q1

REPORT INFORMATION
  Report Type: 
  Country: None (occurrence: None)
  Receive Date: 20070130
  Receipt Date: 20070119
  Transmission Date: 20070707
  Serious: Yes (Hospitalization)
  Sender: FDA-Public Use
  Company Number: PHBS2007SE01397

PATIENT
  Age: 82 Year
  Sex: Female

DRUGS (5)
  1. VOLTAREN [Suspect]
     Indication: PAIN IN EXTREMITY
     Route: 054
     Dates: start: 20061101, end: 20061107
  2. PANOCOD [Suspect]
     Indication: PAIN IN EXTREMITY
     Dates: start: 20061101, end: 20061107
  3. TIPAROL [Suspect]
     Indication: PAIN IN EXTREMITY
     Dates: start: 20061101, end: 20061107
  4. SOTALOL HCL [Concomitant]
     Dosage: 80 MG/DAY
  5. TROMBYL [Concomitant]
     Dosage: 75 MG/DAY

REACTIONS (3)
  - BLOOD SODIUM DECREASED [None]
  - NAUSEA [None]
  - VOMITING [None]
